FAERS Safety Report 5103928-2 (Version None)
Quarter: 2006Q3

REPORT INFORMATION
  Report Type: 
  Country: None (occurrence: None)
  Receive Date: 20060908
  Receipt Date: 20060907
  Transmission Date: 20061208
  Serious: No
  Sender: FDA-Public Use
  Company Number: 226317

PATIENT
  Sex: Female

DRUGS (2)
  1. AVASTIN [Suspect]
     Indication: BREAST CANCER METASTATIC
     Dosage: 10 MG/KG, Q2W, INTRAVENOUS
     Route: 042
  2. ABRAXANE [Concomitant]

REACTIONS (2)
  - ASCITES [None]
  - PLEURAL EFFUSION [None]
